FAERS Safety Report 8046217-9 (Version None)
Quarter: 2012Q1

REPORT INFORMATION
  Report Type: 
  Country: None (occurrence: None)
  Receive Date: 20120113
  Receipt Date: 20120110
  Transmission Date: 20120608
  Serious: Yes (Death, Life-Threatening, Hospitalization)
  Sender: FDA-Public Use
  Company Number: US-CELGENEUS-163-AB007-11051666

PATIENT
  Sex: Female
  Weight: 76 kg

DRUGS (17)
  1. IMODIUM [Concomitant]
     Indication: PAIN
  2. PRILOSEC [Concomitant]
     Route: 048
     Dates: start: 20110105
  3. ACETAMINOPHEN [Concomitant]
     Indication: HEADACHE
     Route: 048
     Dates: start: 20110224, end: 20110224
  4. LOMOTIL [Concomitant]
     Dosage: 2.5 MILLIGRAM
     Route: 048
     Dates: start: 20110408, end: 20110516
  5. ABRAXANE [Suspect]
     Indication: ADENOCARCINOMA PANCREAS
     Dosage: 125 MILLIGRAM/SQ. METER
     Route: 041
     Dates: start: 20110211, end: 20110429
  6. FENTANYL [Concomitant]
     Indication: BACK PAIN
     Dosage: 12 MICROGRAM
     Route: 062
     Dates: start: 20110201, end: 20110516
  7. GEMCITABINE [Suspect]
     Indication: ADENOCARCINOMA PANCREAS
     Dosage: 1000 MILLIGRAM/SQ. METER
     Route: 041
     Dates: start: 20110211, end: 20110429
  8. MULTI-VITAMINS [Concomitant]
     Indication: SUPPLEMENTATION THERAPY
     Route: 048
     Dates: start: 20030101
  9. CIPROFLOXACIN [Concomitant]
     Dosage: 1 TABLET
     Route: 048
     Dates: start: 20110511, end: 20110511
  10. NAPROSYN [Concomitant]
     Indication: BACK PAIN
     Route: 048
     Dates: start: 20101201
  11. PROCHLORPERAZINE MALEATE [Concomitant]
     Indication: NAUSEA
     Route: 048
     Dates: start: 20110204
  12. ACETAMINOPHEN [Concomitant]
     Indication: PAIN
  13. IMODIUM [Concomitant]
     Route: 048
     Dates: start: 20110224, end: 20110224
  14. ATIVAN [Concomitant]
     Indication: ANXIETY
     Dosage: .5 MILLIGRAM
     Route: 048
     Dates: start: 20110102, end: 20110516
  15. MORPHINE [Concomitant]
     Route: 041
     Dates: start: 20110515
  16. ATIVAN [Concomitant]
     Indication: NAUSEA
  17. MORPHINE [Concomitant]

REACTIONS (2)
  - ACUTE RESPIRATORY DISTRESS SYNDROME [None]
  - PNEUMONIA [None]
